FAERS Safety Report 5275610-2 (Version None)
Quarter: 2007Q1

REPORT INFORMATION
  Report Type: 
  Country: None (occurrence: None)
  Receive Date: 20070326
  Receipt Date: 20070313
  Transmission Date: 20070707
  Serious: Yes (Hospitalization, Other)
  Sender: FDA-Public Use
  Company Number: PHFR2007IE01041

PATIENT
  Age: 33 Year
  Sex: Male

DRUGS (7)
  1. CLOZARIL [Suspect]
     Indication: SCHIZOPHRENIA
     Dosage: 400 MG/DAY
     Route: 048
     Dates: start: 20030704
  2. CLOZARIL [Suspect]
     Dosage: TOOK 2-3 BOXES OF 100MG CLOZARIL TABLETS
     Route: 048
  3. SOLIAN [Concomitant]
  4. LAMICTAL [Concomitant]
  5. PROZAC [Concomitant]
  6. EPILIM [Concomitant]
  7. ANTABUSE [Suspect]

REACTIONS (7)
  - BLOOD CREATINE PHOSPHOKINASE INCREASED [None]
  - C-REACTIVE PROTEIN INCREASED [None]
  - GAIT DISTURBANCE [None]
  - OVERDOSE [None]
  - SOMNOLENCE [None]
  - SUICIDAL IDEATION [None]
  - TREATMENT NONCOMPLIANCE [None]
